FAERS Safety Report 16519754 (Version 1)
Quarter: 2019Q3

REPORT INFORMATION
  Report Type: Spontaneous
  Country: GB (occurrence: GB)
  Receive Date: 20190702
  Receipt Date: 20190702
  Transmission Date: 20191004
  Serious: Yes (Other)
  Sender: FDA-Public Use
  Company Number: GB-TEVA-2019-GB-1071246

PATIENT
  Age: 7 Year
  Sex: Male

DRUGS (3)
  1. FUCIBET [Concomitant]
     Dosage: APPLY TO AFFECTED AREAS. DO NOT USE ON THE FACE FOR MORE THAN 2 WEEKS, 2 DOSAGE FORMS PER DAY
     Dates: start: 20190403
  2. AMOXICILLIN. [Suspect]
     Active Substance: AMOXICILLIN
     Dosage: 250MG/5ML
     Route: 048
  3. CLARITHROMYCIN. [Concomitant]
     Active Substance: CLARITHROMYCIN
     Dosage: 250MG/5ML, 10ML PER DAY
     Dates: start: 20190403

REACTIONS (1)
  - Lip swelling [Recovered/Resolved]

NARRATIVE: CASE EVENT DATE: 20181114
